FAERS Safety Report 19800139 (Version 2)
Quarter: 2021Q4

REPORT INFORMATION
  Report Type: Spontaneous
  Country: ES (occurrence: ES)
  Receive Date: 20210907
  Receipt Date: 20211210
  Transmission Date: 20220303
  Serious: Yes (Death, Hospitalization, Other)
  Sender: FDA-Public Use
  Company Number: ES-CELGENE-ESP-20210809397

PATIENT
  Age: 78 Year
  Sex: Female
  Weight: 62.8 kg

DRUGS (10)
  1. AZACITIDINE [Suspect]
     Active Substance: AZACITIDINE
     Indication: Acute myeloid leukaemia
     Dosage: FREQUENCY 5 ON 2 OFF, 2 ON IN 28 CYCLE
     Route: 058
     Dates: start: 20210723, end: 20210823
  2. CINEZOLID [Concomitant]
     Indication: Infection prophylaxis
     Route: 065
     Dates: start: 20210802, end: 20210811
  3. MEROPENEM [Concomitant]
     Active Substance: MEROPENEM
     Indication: Infection prophylaxis
     Route: 065
     Dates: start: 20210726, end: 20210809
  4. CLINDAMYCIN HYDROCHLORIDE [Concomitant]
     Active Substance: CLINDAMYCIN HYDROCHLORIDE
     Indication: Infection prophylaxis
     Route: 065
     Dates: start: 20210720, end: 20210727
  5. AMIKACIN [Concomitant]
     Active Substance: AMIKACIN
     Indication: Infection prophylaxis
     Route: 065
     Dates: start: 20210714, end: 20210805
  6. TIGECYCLINE [Concomitant]
     Active Substance: TIGECYCLINE
     Indication: Infection prophylaxis
     Route: 065
     Dates: start: 20210815, end: 20210821
  7. ANFOTERICINA B [Concomitant]
     Indication: Infection prophylaxis
     Route: 065
     Dates: start: 20210806, end: 20210819
  8. TAZOBACTAM [Concomitant]
     Active Substance: TAZOBACTAM
     Indication: Infection prophylaxis
     Route: 065
     Dates: start: 20210809, end: 20210823
  9. PIPERACILLIN [Concomitant]
     Active Substance: PIPERACILLIN
     Indication: Infection prophylaxis
     Route: 065
     Dates: start: 20210809, end: 20210821
  10. LEVOFLOXACIN [Concomitant]
     Active Substance: LEVOFLOXACIN
     Indication: Infection prophylaxis
     Route: 065
     Dates: start: 20210727, end: 20210802

REACTIONS (2)
  - Organising pneumonia [Fatal]
  - Systemic candida [Recovered/Resolved]

NARRATIVE: CASE EVENT DATE: 20210818
